FAERS Safety Report 9769016 (Version 1)
Quarter: 2013Q4

REPORT INFORMATION
  Report Type: Spontaneous
  Country: US (occurrence: None)
  Receive Date: 20131209
  Receipt Date: 20131209
  Transmission Date: 20140711
  Serious: Yes (Death, Hospitalization)
  Sender: FDA-Public Use
  Company Number: AEUSA201300426

PATIENT
  Age: 65 Year
  Sex: Male

DRUGS (12)
  1. GAMUNEX-C (10 PCT) [Suspect]
     Indication: MYOPATHY
     Route: 042
     Dates: start: 20131120, end: 20131123
  2. GAMUNEX-C (10 PCT) [Suspect]
     Indication: MYELODYSPLASTIC SYNDROME
     Route: 042
     Dates: start: 20131120, end: 20131123
  3. GAMUNEX-C (10 PCT) [Suspect]
     Indication: POLYMYOSITIS
     Route: 042
     Dates: start: 20131120, end: 20131123
  4. ALLOPURINOL [Concomitant]
  5. ASPIRIN [Concomitant]
  6. COLCHICINE [Concomitant]
  7. FLUCONAZOLE [Concomitant]
  8. LEVOFLOXACINE [Concomitant]
  9. LIDOCAINE [Concomitant]
  10. PREDNISONE [Concomitant]
  11. TAMSULOSIN [Concomitant]
  12. VALACYCLOVIR [Concomitant]

REACTIONS (4)
  - Cardiogenic shock [None]
  - Renal failure [None]
  - Metabolic acidosis [None]
  - Myocardial infarction [None]
